FAERS Safety Report 18567773 (Version 1)
Quarter: 2020Q4

REPORT INFORMATION
  Report Type: Spontaneous
  Country: US (occurrence: US)
  Receive Date: 20201202
  Receipt Date: 20201202
  Transmission Date: 20210114
  Serious: No
  Sender: FDA-Public Use
  Company Number: US-JNJFOC-20201144577

PATIENT
  Sex: Female

DRUGS (1)
  1. PEPCID [Suspect]
     Active Substance: FAMOTIDINE
     Indication: DYSPEPSIA
     Dosage: EVERY NIGHT BEFORE BED WHEN MY SYMPTOMS ARE AT THEIR WORST
     Route: 065

REACTIONS (1)
  - Exposure during pregnancy [Unknown]
